FAERS Safety Report 18305830 (Version 1)
Quarter: 2020Q3

REPORT INFORMATION
  Report Type: Spontaneous
  Country: US (occurrence: US)
  Receive Date: 20200923
  Receipt Date: 20200923
  Transmission Date: 20201103
  Serious: No
  Sender: FDA-Public Use
  Company Number: None

PATIENT
  Age: 76 Year
  Sex: Male

DRUGS (2)
  1. DURVALUMAB (DURVALUMAB 50MG/ML INJ, SOLN, 10ML) [Suspect]
     Active Substance: DURVALUMAB
     Indication: NON-SMALL CELL LUNG CANCER
     Dates: start: 20180628, end: 20180725
  2. DURVALUMAB (DURVALUMAB 50MG/ML INJ, SOLN, 10ML) [Suspect]
     Active Substance: DURVALUMAB
     Indication: NON-SMALL CELL LUNG CANCER
     Dates: start: 20180628, end: 20180725

REACTIONS (4)
  - Fatigue [None]
  - Therapy cessation [None]
  - Urticaria [None]
  - Dermatitis [None]

NARRATIVE: CASE EVENT DATE: 20180808
